FAERS Safety Report 7853175-6 (Version None)
Quarter: 2011Q4

REPORT INFORMATION
  Report Type: 
  Country: None (occurrence: None)
  Receive Date: 20111026
  Receipt Date: 20111020
  Transmission Date: 20120403
  Serious: Yes (Death, Life-Threatening, Hospitalization, Disabling, Other)
  Sender: FDA-Public Use
  Company Number: US-MERCK-1106USA01472

PATIENT
  Age: 62 Year
  Sex: Male
  Weight: 120 kg

DRUGS (4)
  1. JANUMET [Suspect]
     Indication: DIABETES MELLITUS
     Route: 048
     Dates: start: 20110223, end: 20110606
  2. PROAIR (ALBUTEROL SULFATE) [Concomitant]
     Indication: ASTHMA
     Route: 065
     Dates: start: 20091101
  3. LISINOPRIL [Concomitant]
     Indication: HYPERTENSION
     Route: 048
     Dates: start: 20110301
  4. CITALOPRAM [Concomitant]
     Indication: DEPRESSION
     Route: 048
     Dates: start: 20110128

REACTIONS (1)
  - PANCREATITIS [None]
